FAERS Safety Report 4555660-1 (Version None)
Quarter: 2005Q1

REPORT INFORMATION
  Report Type: 
  Country: None (occurrence: None)
  Receive Date: 20050119
  Receipt Date: 20050107
  Transmission Date: 20050727
  Serious: Yes (Other)
  Sender: FDA-Public Use
  Company Number: CA-JNJFOC-20050103065

PATIENT
  Age: 65 Year
  Sex: Female
  Weight: 58.97 kg

DRUGS (3)
  1. TYLENOL (CAPLET) [Suspect]
     Route: 049
  2. TYLENOL (CAPLET) [Suspect]
     Route: 049
  3. NORVASC [Concomitant]

REACTIONS (2)
  - OCULAR RETROBULBAR HAEMORRHAGE [None]
  - PRURITUS [None]
